FAERS Safety Report 6939293-5 (Version None)
Quarter: 2010Q3

REPORT INFORMATION
  Report Type: 
  Country: None (occurrence: None)
  Receive Date: 20100824
  Receipt Date: 20100817
  Transmission Date: 20110219
  Serious: Yes (Other)
  Sender: FDA-Public Use
  Company Number: CA-ABBOTT-10P-028-0651940-00

PATIENT
  Sex: Male

DRUGS (2)
  1. LIPIDIL [Suspect]
     Indication: PRODUCT USED FOR UNKNOWN INDICATION
  2. CRESTOR [Interacting]
     Indication: PRODUCT USED FOR UNKNOWN INDICATION
     Dates: end: 20090101

REACTIONS (5)
  - DISCOMFORT [None]
  - DRUG INTERACTION [None]
  - HYPOKINESIA [None]
  - INSOMNIA [None]
  - MUSCLE DISORDER [None]
